FAERS Safety Report 5475357-3 (Version None)
Quarter: 2007Q4

REPORT INFORMATION
  Report Type: 
  Country: None (occurrence: None)
  Receive Date: 20071001
  Receipt Date: 20070924
  Transmission Date: 20080405
  Serious: Yes (Hospitalization, Other)
  Sender: FDA-Public Use
  Company Number: 2007SP019422

PATIENT
  Age: 53 Year
  Sex: Female

DRUGS (7)
  1. PEG-INTRON [Suspect]
     Indication: HEPATITIS C
     Dates: start: 20010901, end: 20011001
  2. INTRON A [Suspect]
     Indication: HEPATITIS C
     Dates: start: 20000901, end: 20010901
  3. FLONASE [Concomitant]
  4. FUROSEMIDE [Concomitant]
  5. POTASSIUM CHLORIDE [Concomitant]
  6. RIBAVIRIN [Suspect]
     Indication: HEPATITIS C
     Dosage: PO
     Route: 048
     Dates: start: 20000901, end: 20011001
  7. NEUPOGEN [Suspect]
     Indication: HEPATITIS C
     Dates: start: 20000901, end: 20011001

REACTIONS (6)
  - DEHYDRATION [None]
  - FEELING HOT [None]
  - HYPOTHYROIDISM [None]
  - NECK PAIN [None]
  - PERICARDITIS [None]
  - SINUS DISORDER [None]
